FAERS Safety Report 23682862 (Version 1)
Quarter: 2024Q1

REPORT INFORMATION
  Report Type: Spontaneous
  Country: US (occurrence: US)
  Receive Date: 20240328
  Receipt Date: 20240328
  Transmission Date: 20240410
  Serious: No
  Sender: FDA-Public Use
  Company Number: US-BAYER-2024A046051

PATIENT
  Sex: Male

DRUGS (5)
  1. CLARITIN REDITABS [Suspect]
     Active Substance: LORATADINE
     Indication: Hypersensitivity
     Dosage: 1 DF
     Route: 048
  2. CLARITIN REDITABS [Suspect]
     Active Substance: LORATADINE
     Indication: Nasopharyngitis
  3. CLARITIN REDITABS [Suspect]
     Active Substance: LORATADINE
     Indication: Lacrimation increased
  4. CLARITIN REDITABS [Suspect]
     Active Substance: LORATADINE
     Indication: Nasal pruritus
  5. CLARITIN REDITABS [Suspect]
     Active Substance: LORATADINE
     Indication: Throat irritation

REACTIONS (1)
  - Drug ineffective [None]
